FAERS Safety Report 9647708 (Version 1)
Quarter: 2013Q4

REPORT INFORMATION
  Report Type: Spontaneous
  Country: ES (occurrence: ES)
  Receive Date: 20131028
  Receipt Date: 20131028
  Transmission Date: 20140711
  Serious: Yes (Other)
  Sender: FDA-Public Use
  Company Number: ES-AMGEN-ESPSP2013074323

PATIENT
  Age: 78 Year
  Sex: Male

DRUGS (2)
  1. ARANESP [Suspect]
     Indication: MYELODYSPLASTIC SYNDROME
     Dosage: 300 MUG, QWK
     Route: 058
     Dates: start: 20130607, end: 20130731
  2. OMEPRAZOLE [Concomitant]
     Indication: GASTRITIS
     Dosage: UNK
     Dates: start: 2000

REACTIONS (1)
  - Acute myeloid leukaemia [Recovering/Resolving]
